FAERS Safety Report 19163500 (Version 1)
Quarter: 2021Q2

REPORT INFORMATION
  Report Type: Spontaneous
  Country: US (occurrence: US)
  Receive Date: 20210420
  Receipt Date: 20210420
  Transmission Date: 20210717
  Serious: Yes (Other)
  Sender: FDA-Public Use
  Company Number: None

PATIENT
  Sex: Female

DRUGS (2)
  1. BISACODYL. [Suspect]
     Active Substance: BISACODYL
  2. MILK OF MAGNESIA [Suspect]
     Active Substance: MAGNESIUM HYDROXIDE

REACTIONS (2)
  - Muscle spasms [None]
  - Nausea [None]
